FAERS Safety Report 20192382 (Version 1)
Quarter: 2021Q4

REPORT INFORMATION
  Report Type: Spontaneous
  Country: US (occurrence: US)
  Receive Date: 20211216
  Receipt Date: 20211216
  Transmission Date: 20220303
  Serious: No
  Sender: FDA-Public Use
  Company Number: US-ALLERGAN-2106343US

PATIENT
  Sex: Female

DRUGS (5)
  1. LO LOESTRIN FE [Suspect]
     Active Substance: ETHINYL ESTRADIOL\NORETHINDRONE ACETATE
     Indication: Hormone level abnormal
     Dosage: UNK
     Dates: start: 202101
  2. LO LOESTRIN FE [Suspect]
     Active Substance: ETHINYL ESTRADIOL\NORETHINDRONE ACETATE
     Indication: Premenstrual dysphoric disorder
  3. LO LOESTRIN FE [Suspect]
     Active Substance: ETHINYL ESTRADIOL\NORETHINDRONE ACETATE
     Indication: Mood altered
  4. COVID-19 VACCINE NOS [Suspect]
     Active Substance: COVID-19 VACCINE NOS
     Dosage: 2 DOSES
  5. VITAMINS [Concomitant]
     Active Substance: VITAMINS

REACTIONS (7)
  - Therapeutic response unexpected [Unknown]
  - Adnexa uteri pain [Recovered/Resolved]
  - Off label use [Unknown]
  - Fluid retention [Recovered/Resolved]
  - Abdominal pain upper [Recovered/Resolved]
  - Breast tenderness [Recovered/Resolved]
  - Vaginal haemorrhage [Recovered/Resolved]

NARRATIVE: CASE EVENT DATE: 20210101
